FAERS Safety Report 21854847 (Version 1)
Quarter: 2023Q1

REPORT INFORMATION
  Report Type: Spontaneous
  Country: US (occurrence: None)
  Receive Date: 20230112
  Receipt Date: 20230112
  Transmission Date: 20230418
  Serious: Yes (unspecified)
  Sender: FDA-Public Use
  Company Number: None

PATIENT
  Age: 46 Year
  Sex: Male
  Weight: 113.85 kg

DRUGS (1)
  1. DEXMEDETOMIDINE [Suspect]
     Active Substance: DEXMEDETOMIDINE
     Indication: Sedation
     Dosage: MCG  IV?
     Route: 042
     Dates: start: 20221010, end: 20221010

REACTIONS (21)
  - Tachypnoea [None]
  - Hypotension [None]
  - Tachycardia [None]
  - Respiratory distress [None]
  - Agitation [None]
  - Diverticulitis [None]
  - Hyperhidrosis [None]
  - Cold sweat [None]
  - Acute respiratory failure [None]
  - Acute respiratory distress syndrome [None]
  - Pneumonia [None]
  - Laryngeal oedema [None]
  - Septic shock [None]
  - Acute kidney injury [None]
  - Hypertransaminasaemia [None]
  - Multiple organ dysfunction syndrome [None]
  - Atrial fibrillation [None]
  - Atrial fibrillation [None]
  - Obesity [None]
  - Dyspnoea [None]
  - Pulmonary mass [None]

NARRATIVE: CASE EVENT DATE: 20221010
